FAERS Safety Report 17606674 (Version 1)
Quarter: 2020Q1

REPORT INFORMATION
  Report Type: Report from Study
  Country: CA (occurrence: CA)
  Receive Date: 20200331
  Receipt Date: 20200331
  Transmission Date: 20200409
  Serious: No
  Sender: FDA-Public Use
  Company Number: CA-TOLMAR, INC.-20CA020570

PATIENT
  Sex: Male

DRUGS (20)
  1. EFUDEX [Concomitant]
     Active Substance: FLUOROURACIL
     Indication: SKIN LESION
     Dosage: ONE LOCAL APPLICATION ON LESIONS BID, 7 DAYS
     Route: 065
     Dates: start: 20190110
  2. XARELTO [Concomitant]
     Active Substance: RIVAROXABAN
     Indication: PRODUCT USED FOR UNKNOWN INDICATION
     Dosage: 1 DOSAGE FORM, QD WHILE EATING
     Route: 065
     Dates: start: 20190102
  3. HYDROMORPHONE [Concomitant]
     Active Substance: HYDROMORPHONE
     Indication: PAIN
     Dosage: 1 DOSAGE FORM, Q 4 HR
     Route: 065
     Dates: start: 20190110
  4. FLUOXETINE [Concomitant]
     Active Substance: FLUOXETINE HYDROCHLORIDE
     Indication: PRODUCT USED FOR UNKNOWN INDICATION
     Dosage: 1 DOSAGE FORM AT BREAKFAST Q 2 DAYS
     Route: 065
     Dates: start: 20190102
  5. PREGABALIN. [Concomitant]
     Active Substance: PREGABALIN
     Indication: PRODUCT USED FOR UNKNOWN INDICATION
     Dosage: 1 DOSAGE FORM, BID MORNING AND NIGHT
     Route: 065
     Dates: start: 20181226
  6. CORTODERM [HYDROCORTISONE] [Concomitant]
     Indication: SKIN LESION
     Dosage: ONE LOCAL APPLICATION ON LESIONS BID, 7 DAYS
     Route: 061
     Dates: start: 20190110
  7. MYLAN RIVASTIGMINE [RIVASTIGMINE] [Concomitant]
     Indication: PRODUCT USED FOR UNKNOWN INDICATION
     Dosage: 1 DOSAGE FORM, QD
     Route: 065
     Dates: start: 20190109
  8. LESCOL XL [Concomitant]
     Active Substance: FLUVASTATIN SODIUM
     Indication: PRODUCT USED FOR UNKNOWN INDICATION
     Dosage: 1 DOSAGE FORM, QD
     Route: 065
     Dates: start: 20181219
  9. ALFUZOSIN SANDOZ [Concomitant]
     Active Substance: ALFUZOSIN
     Indication: PRODUCT USED FOR UNKNOWN INDICATION
     Dosage: 1 DOSAGE FORM, QD AFTER SUPPER
     Route: 065
     Dates: start: 20190109
  10. MYLAN NITRO [Concomitant]
     Active Substance: NITROGLYCERIN
     Indication: CHEST PAIN
     Dosage: 1 SPRAY UNDER THE TONGUE Q 5 MIN FOR CHEST PAIN, MAX 3 PER EVENT
     Route: 060
  11. ELIGARD [Suspect]
     Active Substance: LEUPROLIDE ACETATE
     Indication: PROSTATE CANCER
     Dosage: 30 MG, Q 4 MONTH
     Route: 058
     Dates: start: 20080616
  12. ELIGARD [Suspect]
     Active Substance: LEUPROLIDE ACETATE
     Dosage: 30 MG, Q 4 MONTH
     Route: 058
     Dates: start: 20181203
  13. EZETIMIBE. [Concomitant]
     Active Substance: EZETIMIBE
     Indication: PRODUCT USED FOR UNKNOWN INDICATION
     Dosage: 1 DOSAGE FORM, QD
     Route: 065
     Dates: start: 20190109
  14. OPUS CAL D 400 [Concomitant]
     Indication: PRODUCT USED FOR UNKNOWN INDICATION
     Dosage: 1 DOSAGE FORM, BID
     Route: 048
     Dates: start: 20181212
  15. DOCUSATE CALCIUM. [Concomitant]
     Active Substance: DOCUSATE CALCIUM
     Indication: PRODUCT USED FOR UNKNOWN INDICATION
     Dosage: 2 DOSAGE FORM, QD
     Route: 065
     Dates: start: 20180607
  16. DOVONEX [Concomitant]
     Active Substance: CALCIPOTRIENE
     Indication: SKIN LESION
     Dosage: ONE LOCAL APPLICATION ON LESIONS BID, 7 DAYS
     Route: 065
     Dates: start: 20190110
  17. BICALUTAMIDE. [Concomitant]
     Active Substance: BICALUTAMIDE
     Indication: PRODUCT USED FOR UNKNOWN INDICATION
     Dosage: 1 DOSAGE FORM, QD
     Route: 065
     Dates: start: 20181226
  18. OPUS SENNA [Concomitant]
     Indication: CONSTIPATION
     Dosage: 2 DOSAGE FORM, BIDMORNING AND NIGHT
     Route: 065
     Dates: start: 20180607
  19. ALENDRONATE TEVA [Concomitant]
     Active Substance: ALENDRONATE SODIUM
     Indication: PRODUCT USED FOR UNKNOWN INDICATION
     Dosage: 1 DOSAGE FORM, 1/WEEK THE MORNING 1/2HR BEFORE FOOD OR MEDICATIONS WITH 250ML OF WATER
     Route: 065
     Dates: start: 20190109
  20. PANTOPRAZOL SANDOZ [Concomitant]
     Active Substance: PANTOPRAZOLE SODIUM
     Indication: PRODUCT USED FOR UNKNOWN INDICATION
     Dosage: 1 DOSAGE FORM, QD BEFORE BREAKFAST
     Route: 065
     Dates: start: 20190109

REACTIONS (3)
  - Headache [Unknown]
  - Neck pain [Unknown]
  - Spinal pain [Unknown]
